FAERS Safety Report 12309283 (Version 1)
Quarter: 2016Q2

REPORT INFORMATION
  Report Type: Spontaneous
  Country: US (occurrence: US)
  Receive Date: 20160427
  Receipt Date: 20160427
  Transmission Date: 20160815
  Serious: Yes (Life-Threatening, Hospitalization)
  Sender: FDA-Public Use
  Company Number: US-SCIEGEN PHARMACEUTICALS INC-2016SCILIT00092

PATIENT
  Age: 63 Year
  Sex: Female

DRUGS (3)
  1. DULOXETINE. [Suspect]
     Active Substance: DULOXETINE
     Indication: PRODUCT USED FOR UNKNOWN INDICATION
     Dosage: 40 MG, QD
     Route: 065
  2. HYDROCHLOROTHIAZIDE TABLETS [Suspect]
     Active Substance: HYDROCHLOROTHIAZIDE
     Indication: HYPERTENSION
     Dosage: 25 MG, QD
     Route: 065
  3. TRIAMTERENE. [Suspect]
     Active Substance: TRIAMTERENE
     Indication: HYPERTENSION
     Dosage: 37.5 MG, QD
     Route: 065

REACTIONS (4)
  - Seizure [Recovering/Resolving]
  - Lethargy [Recovering/Resolving]
  - Encephalopathy [Recovering/Resolving]
  - Hyponatraemia [Unknown]
